FAERS Safety Report 9416981 (Version 1)
Quarter: 2013Q3

REPORT INFORMATION
  Report Type: Spontaneous
  Country: US (occurrence: None)
  Receive Date: 20130722
  Receipt Date: 20130722
  Transmission Date: 20140515
  Serious: Yes (Hospitalization)
  Sender: FDA-Public Use
  Company Number: ACO_37363_2013

PATIENT
  Age: 69 Year
  Sex: Female
  Weight: 59 kg

DRUGS (7)
  1. AMPYRA [Suspect]
     Indication: PRODUCT USED FOR UNKNOWN INDICATION
     Route: 048
  2. ZOLPIDEM (ZOLPIDEM TARTRATE) [Concomitant]
  3. QUINAPRIL (QUINAPRIL HYDROCHLORIDE) [Concomitant]
  4. SIMVASTATIN (SIMVASTATIN) [Concomitant]
  5. TRIFLUOPERAZINE (TRIFLUOPERAZINE HYDROCHLORIDE) [Concomitant]
  6. FELODIPINE (FELODIPINE) [Concomitant]
  7. BABY ASPIRIN (ACETYLSALICYLIC ACID) [Concomitant]

REACTIONS (2)
  - Abdominal pain [None]
  - Constipation [None]
